FAERS Safety Report 9859035 (Version 2)
Quarter: 2014Q3

REPORT INFORMATION
  Report Type: Spontaneous
  Country: US (occurrence: US)
  Receive Date: 20140131
  Receipt Date: 20140710
  Transmission Date: 20150326
  Serious: Yes (Hospitalization, Other)
  Sender: FDA-Public Use
  Company Number: US-009507513-1401USA014104

PATIENT
  Sex: Female
  Weight: 67.57 kg

DRUGS (1)
  1. NUVARING [Suspect]
     Active Substance: ETHINYL ESTRADIOL\ETONOGESTREL
     Indication: CONTRACEPTION
     Dosage: UNK
     Route: 067
     Dates: start: 200803, end: 20120426

REACTIONS (8)
  - Escherichia urinary tract infection [Unknown]
  - Pulmonary embolism [Unknown]
  - Migraine [Unknown]
  - Dyslipidaemia [Unknown]
  - Pleural effusion [Unknown]
  - Pneumonia [Unknown]
  - Hypothyroidism [Unknown]
  - Leukocytosis [Unknown]

NARRATIVE: CASE EVENT DATE: 201205
